FAERS Safety Report 8490912-4 (Version None)
Quarter: 2012Q2

REPORT INFORMATION
  Report Type: 
  Country: None (occurrence: None)
  Receive Date: 20120629
  Receipt Date: 20120629
  Transmission Date: 20120825
  Serious: No
  Sender: FDA-Public Use
  Company Number: None

PATIENT
  Age: 78 Year
  Sex: Male
  Weight: 81.6475 kg

DRUGS (1)
  1. AZITHROMYCIN [Suspect]
     Indication: RESPIRATORY TRACT INFECTION
     Dosage: 2 FIRST DAY THEN ONE FOR 5 MORE
     Dates: start: 20120626, end: 20120626

REACTIONS (8)
  - HEADACHE [None]
  - LYMPHADENOPATHY [None]
  - PAIN IN JAW [None]
  - ILL-DEFINED DISORDER [None]
  - EYE PAIN [None]
  - FACIAL PAIN [None]
  - MIDDLE INSOMNIA [None]
  - TOOTHACHE [None]
